FAERS Safety Report 14423800 (Version 1)
Quarter: 2018Q1

REPORT INFORMATION
  Report Type: Spontaneous
  Country: US (occurrence: US)
  Receive Date: 20180123
  Receipt Date: 20180123
  Transmission Date: 20180509
  Serious: No
  Sender: FDA-Public Use
  Company Number: US-009507513-1801USA004929

PATIENT
  Age: 61 Year
  Sex: Male

DRUGS (6)
  1. VORICONAZOLE. [Concomitant]
     Active Substance: VORICONAZOLE
     Indication: ASPERGILLUS INFECTION
     Dosage: 450 MG TWICE DAILY FOR TWO DOSES
     Route: 042
  2. MEROPENEM. [Concomitant]
     Active Substance: MEROPENEM
     Indication: PNEUMONIA
     Dosage: UNK
     Route: 042
  3. VORICONAZOLE. [Concomitant]
     Active Substance: VORICONAZOLE
     Dosage: 300 MG, TWICE DAILY
     Route: 048
  4. VORICONAZOLE. [Concomitant]
     Active Substance: VORICONAZOLE
     Dosage: 300 MG, TWICE DAILY
     Route: 042
  5. NOXAFIL [Suspect]
     Active Substance: POSACONAZOLE
     Indication: ASPERGILLUS INFECTION
     Dosage: UNK
     Route: 048
  6. LINEZOLID. [Concomitant]
     Active Substance: LINEZOLID
     Indication: PNEUMONIA
     Dosage: UNK
     Route: 042

REACTIONS (2)
  - Off label use [Unknown]
  - Liver function test abnormal [Unknown]
